FAERS Safety Report 14938372 (Version 1)
Quarter: 2018Q2

REPORT INFORMATION
  Report Type: Spontaneous
  Country: US (occurrence: US)
  Receive Date: 20180525
  Receipt Date: 20180525
  Transmission Date: 20180711
  Serious: No
  Sender: FDA-Public Use
  Company Number: US-BAYER-2018-091081

PATIENT
  Age: 82 Year
  Sex: Male
  Weight: 97.96 kg

DRUGS (3)
  1. LOTRIMIN ULTRA ANTIFUNGAL [Suspect]
     Active Substance: BUTENAFINE HYDROCHLORIDE
     Indication: THERAPEUTIC SKIN CARE TOPICAL
     Dosage: FINGERTIP AMOUNT DOSE
     Route: 061
     Dates: start: 20171105, end: 20180510
  2. CHOLESTEROL [Concomitant]
     Active Substance: CHOLESTEROL
  3. LOTRIMIN ULTRA ANTIFUNGAL [Suspect]
     Active Substance: BUTENAFINE HYDROCHLORIDE
     Indication: TINEA PEDIS

REACTIONS (2)
  - Drug ineffective [Unknown]
  - Product use issue [Unknown]

NARRATIVE: CASE EVENT DATE: 20171105
